FAERS Safety Report 25383483 (Version 1)
Quarter: 2025Q2

REPORT INFORMATION
  Report Type: Other
  Country: PK (occurrence: PK)
  Receive Date: 20250602
  Receipt Date: 20250602
  Transmission Date: 20250717
  Serious: Yes (Hospitalization)
  Sender: ANI
  Company Number: PK-ANIPHARMA-022957

PATIENT
  Age: 6 Year
  Sex: Male

DRUGS (4)
  1. CYCLOPHOSPHAMIDE [Suspect]
     Active Substance: CYCLOPHOSPHAMIDE
     Indication: Burkitt^s lymphoma stage III
  2. RASBURICASE [Concomitant]
     Active Substance: RASBURICASE
     Indication: Hyperuricaemia
  3. METHOTREXATE [Concomitant]
     Active Substance: METHOTREXATE
     Indication: Burkitt^s lymphoma stage III
     Route: 037
  4. VINCRISTINE [Concomitant]
     Active Substance: VINCRISTINE
     Indication: Burkitt^s lymphoma stage III

REACTIONS (1)
  - Condition aggravated [Unknown]
